FAERS Safety Report 16180527 (Version 1)
Quarter: 2019Q2

REPORT INFORMATION
  Report Type: Spontaneous
  Country: US (occurrence: US)
  Receive Date: 20190410
  Receipt Date: 20190410
  Transmission Date: 20190711
  Serious: No
  Sender: FDA-Public Use
  Company Number: US-PFIZER INC-2019148687

PATIENT
  Age: 39 Year
  Weight: 108.8 kg

DRUGS (3)
  1. ZIPRASIDONE HCL [Suspect]
     Active Substance: ZIPRASIDONE HYDROCHLORIDE
     Indication: SCHIZOAFFECTIVE DISORDER
     Dosage: 80 MG, 1X/DAY (IN THE EVENING)
  2. LURASIDONE [Concomitant]
     Active Substance: LURASIDONE
     Indication: SCHIZOAFFECTIVE DISORDER
     Dosage: 20 MG, 1X/DAY(JUST ONCE IN THE EVENING BEFORE BED)
  3. LEVITRA [Concomitant]
     Active Substance: VARDENAFIL HYDROCHLORIDE TRIHYDRATE
     Dosage: UNK

REACTIONS (2)
  - Blood testosterone decreased [Unknown]
  - Erectile dysfunction [Unknown]
